FAERS Safety Report 10169985 (Version 1)
Quarter: 2014Q2

REPORT INFORMATION
  Report Type: Spontaneous
  Country: GB (occurrence: GB)
  Receive Date: 20140513
  Receipt Date: 20140513
  Transmission Date: 20141212
  Serious: Yes (Hospitalization)
  Sender: FDA-Public Use
  Company Number: PHHY2014GB055129

PATIENT
  Age: 72 Year
  Sex: Female

DRUGS (10)
  1. CLOBETASOL [Suspect]
     Indication: DERMATITIS ATOPIC
     Dosage: 0.05 %, UNK
     Route: 061
  2. OMEPRAZOLE [Concomitant]
  3. PARACETAMOL [Concomitant]
  4. SIMVASTATIN [Concomitant]
  5. LEVOTHYROXIN [Concomitant]
  6. LISINOPRIL [Concomitant]
  7. ASPIRIN [Concomitant]
  8. BISOPROLOL [Concomitant]
  9. ANTIBIOTICS [Concomitant]
     Route: 042
  10. DEXAMETHASONE [Concomitant]
     Indication: PROPHYLAXIS OF NAUSEA AND VOMITING
     Dosage: 8 MG, UNK

REACTIONS (8)
  - Cushing^s syndrome [Recovered/Resolved]
  - Nausea [Recovered/Resolved]
  - Vomiting [Recovered/Resolved]
  - Confusional state [Recovered/Resolved]
  - Coma scale abnormal [Recovered/Resolved]
  - Hyponatraemia [Recovered/Resolved]
  - Adrenocortical insufficiency acute [Recovered/Resolved]
  - Adrenal atrophy [Recovered/Resolved]
